FAERS Safety Report 9711179 (Version 1)
Quarter: 2013Q4

REPORT INFORMATION
  Report Type: Spontaneous
  Country: US (occurrence: US)
  Receive Date: 20131126
  Receipt Date: 20131126
  Transmission Date: 20140711
  Serious: No
  Sender: FDA-Public Use
  Company Number: US-BRISTOL-MYERS SQUIBB COMPANY-19188127

PATIENT
  Age: 54 Year
  Sex: Male
  Weight: 126.98 kg

DRUGS (3)
  1. BYETTA PEN DISPOSABLE [Suspect]
     Indication: TYPE 2 DIABETES MELLITUS
     Dosage: DOSE REDUCED TO 5MCG,BID ON 18JUL13
     Route: 058
     Dates: start: 2005
  2. METFORMIN [Concomitant]
     Dosage: 1DF=25/50 UNITS NOS
  3. ATENOLOL [Concomitant]

REACTIONS (3)
  - Blood glucose abnormal [Unknown]
  - Weight decreased [Unknown]
  - C-reactive protein increased [Unknown]
